FAERS Safety Report 4751851-5 (Version None)
Quarter: 2005Q3

REPORT INFORMATION
  Report Type: 
  Country: None (occurrence: None)
  Receive Date: 20050822
  Receipt Date: 20050610
  Transmission Date: 20060218
  Serious: No
  Sender: FDA-Public Use
  Company Number: PHEH2005US06601

PATIENT
  Age: 64 Year
  Sex: Female

DRUGS (1)
  1. ZELNORM [Suspect]
     Indication: IRRITABLE BOWEL SYNDROME
     Dosage: 6 MG, BID, ORAL
     Route: 048
     Dates: start: 20050607, end: 20050608

REACTIONS (4)
  - ABDOMINAL PAIN LOWER [None]
  - DIZZINESS [None]
  - HEADACHE [None]
  - SOMNOLENCE [None]
